FAERS Safety Report 4745614-4 (Version None)
Quarter: 2005Q3

REPORT INFORMATION
  Report Type: 
  Country: None (occurrence: None)
  Receive Date: 20050815
  Receipt Date: 20050727
  Transmission Date: 20060218
  Serious: Yes (Death, Life-Threatening, Hospitalization, Other)
  Sender: FDA-Public Use
  Company Number: 2005-0008576

PATIENT
  Age: 43 Year
  Sex: Female
  Weight: 42 kg

DRUGS (24)
  1. TENOFOVIR DISOPROXIL FUMARATE (TENOFOVIR DISOPROXIL FUMARATE) [Suspect]
     Indication: HIV TEST POSITIVE
     Dosage: 300 MG, 1 IN 1 D, ORAL
     Route: 048
     Dates: start: 20031029, end: 20050103
  2. CAPRAVIRINE [Suspect]
     Indication: HIV TEST POSITIVE
     Dosage: 700 MG, 2 IN 1 D, ORAL
     Route: 048
     Dates: start: 20041004, end: 20050103
  3. LAMIVUDINE [Suspect]
     Indication: HIV TEST POSITIVE
     Dosage: 150 MG, 2 IN 1 D, ORAL
     Route: 048
     Dates: start: 20031020, end: 20050103
  4. DIDANOSINE [Suspect]
     Indication: HIV TEST POSITIVE
     Dosage: 250 MG, 1 IN 1 D, ORAL
     Route: 048
     Dates: start: 20031029, end: 20050103
  5. KALETRA [Suspect]
     Indication: HIV TEST POSITIVE
     Dosage: 8 DOSAGE FORMS, ORAL; 6 DOSAGE FORMS, 1 IN 1 D, ORAL
     Route: 048
     Dates: start: 20031029, end: 20041003
  6. KALETRA [Suspect]
     Indication: HIV TEST POSITIVE
     Dosage: 8 DOSAGE FORMS, ORAL; 6 DOSAGE FORMS, 1 IN 1 D, ORAL
     Route: 048
     Dates: start: 20041004, end: 20050103
  7. THEOPHYLLINE [Concomitant]
  8. VITAMINS (VITAMINS) [Concomitant]
  9. METFORMIN HCL [Concomitant]
  10. LOPERAMIDE HCL [Concomitant]
  11. BACTRIM [Concomitant]
  12. PREDNISONE [Concomitant]
  13. SODIUM CHLORIDE 0.9% [Concomitant]
  14. DIPYRONE TAB [Concomitant]
  15. POTASSIUM CHLORIDE [Concomitant]
  16. GLUCOSE (GLUCOSE) [Concomitant]
  17. HYDROCHLOROTHIAZIDE [Concomitant]
  18. DIMETICONE (DIMETICONE) [Concomitant]
  19. CAPTOPRIL [Concomitant]
  20. PIRIMETAMINE (PYRIMETHAMINE) [Concomitant]
  21. ALBUTEROL SULFATE HFA [Concomitant]
  22. BUDENOSIDE/FORMOTEROL FUMARATE (FORASEQ) [Concomitant]
  23. DAPSONE [Concomitant]
  24. HEPARIN [Concomitant]

REACTIONS (29)
  - ABDOMINAL PAIN [None]
  - ANAEMIA [None]
  - ANURIA [None]
  - APHASIA [None]
  - ASCITES [None]
  - ASTHENIA [None]
  - CATHETER SITE INFECTION [None]
  - DECREASED APPETITE [None]
  - DIARRHOEA [None]
  - DISORIENTATION [None]
  - DRUG HYPERSENSITIVITY [None]
  - GENERAL PHYSICAL HEALTH DETERIORATION [None]
  - HAEMATURIA [None]
  - HAEMODIALYSIS [None]
  - HEPATOMEGALY [None]
  - HEPATORENAL SYNDROME [None]
  - KIDNEY ENLARGEMENT [None]
  - METABOLIC ACIDOSIS [None]
  - MONOPARESIS [None]
  - NAUSEA [None]
  - OEDEMA PERIPHERAL [None]
  - PYREXIA [None]
  - RENAL FAILURE ACUTE [None]
  - RENAL TUBULAR NECROSIS [None]
  - SEPSIS [None]
  - TUBULOINTERSTITIAL NEPHRITIS [None]
  - VASCULITIS [None]
  - VOMITING [None]
  - WEIGHT DECREASED [None]
